FAERS Safety Report 10555802 (Version 5)
Quarter: 2015Q2

REPORT INFORMATION
  Report Type: Spontaneous
  Country: US (occurrence: US)
  Receive Date: 20141030
  Receipt Date: 20150511
  Transmission Date: 20150821
  Serious: Yes (Hospitalization)
  Sender: FDA-Public Use
  Company Number: US-PFIZER INC-2014296913

PATIENT
  Age: 71 Year
  Sex: Female
  Weight: 83.15 kg

DRUGS (21)
  1. REVATIO [Suspect]
     Active Substance: SILDENAFIL CITRATE
     Indication: PULMONARY HYPERTENSION
     Dosage: 20 MG, (EVERY 8 HOURS)
     Route: 048
  2. ALDACTONE [Concomitant]
     Active Substance: SPIRONOLACTONE
     Indication: POLYURIA
     Dosage: 150 MG, 2X/DAY
     Route: 048
  3. CA CARBONATE [Concomitant]
     Dosage: 500 MG, DAILY
  4. INDERAL [Concomitant]
     Active Substance: PROPRANOLOL HYDROCHLORIDE
     Dosage: 80 MG, 1X/DAY
     Route: 048
  5. PROPRANOLOL [Concomitant]
     Active Substance: PROPRANOLOL\PROPRANOLOL HYDROCHLORIDE
     Dosage: UNK
  6. ASPIRIN. [Concomitant]
     Active Substance: ASPIRIN
     Dosage: 325 MG, DAILY
     Route: 048
  7. ABILIFY [Concomitant]
     Active Substance: ARIPIPRAZOLE
     Dosage: 2 MG, ONCE A DAY AT BEDTIME
     Route: 048
  8. OMEPRAZOLE. [Concomitant]
     Active Substance: OMEPRAZOLE
     Dosage: 20 MG, DAILY 2 CAPS BY MOUTH DAILY)
     Route: 048
  9. MS CONTIN PO [Concomitant]
     Dosage: 60 MG, 2X/DAY
     Route: 048
  10. LETAIRIS [Concomitant]
     Active Substance: AMBRISENTAN
     Dosage: 10 MG, DAILY
  11. ZOLOFT [Concomitant]
     Active Substance: SERTRALINE HYDROCHLORIDE
     Dosage: 100 MG, 2X/DAY
     Route: 048
  12. POTASSIMIN [Concomitant]
     Dosage: 60 MEQ, DAILY
     Route: 048
  13. ADVAIR DISKUS [Concomitant]
     Active Substance: FLUTICASONE PROPIONATE\SALMETEROL XINAFOATE
     Dosage: UNK, 2X/DAY
     Route: 055
  14. PROVENTIL HFA [Concomitant]
     Active Substance: ALBUTEROL SULFATE
     Dosage: 2 PUFFS, EVERY 4 HOURS AS NEEDED
     Route: 055
  15. REMODULIN [Concomitant]
     Active Substance: TREPROSTINIL
     Dosage: UNK (INJECT 102 NG/KG/MIN), SINGLE
     Route: 058
  16. NORCO [Concomitant]
     Active Substance: ACETAMINOPHEN\HYDROCODONE BITARTRATE
     Dosage: TAKE 2 TABLETS BY MOUTH, AS NEEDED, 10/325
     Route: 048
  17. BUMEX [Concomitant]
     Active Substance: BUMETANIDE
     Indication: POLYURIA
     Dosage: 3 MG, DAILY
  18. NUVIGIL [Concomitant]
     Active Substance: ARMODAFINIL
     Dosage: 250 MG, DAILY
  19. PREDNISONE. [Concomitant]
     Active Substance: PREDNISONE
     Indication: ARTHRALGIA
     Dosage: 5 MG, DAILY
  20. VITAMIN D [Concomitant]
     Active Substance: CHOLECALCIFEROL
     Dosage: 10000 IU, DAILY
  21. MVI WITH IRON [Concomitant]
     Dosage: UNK

REACTIONS (2)
  - Fluid retention [Unknown]
  - Diverticulitis [Unknown]
